FAERS Safety Report 8250005-8 (Version None)
Quarter: 2012Q2

REPORT INFORMATION
  Report Type: 
  Country: None (occurrence: None)
  Receive Date: 20120402
  Receipt Date: 20120320
  Transmission Date: 20120825
  Serious: Yes (Other)
  Sender: FDA-Public Use
  Company Number: SE-NOVOPROD-344497

PATIENT
  Age: 63 Year
  Sex: Female
  Weight: 91 kg

DRUGS (8)
  1. HUMALIN [Concomitant]
     Dosage: 20 IU, QD
  2. NOVORAPID [Concomitant]
     Dosage: 17 IU, QD
  3. VICTOZA [Suspect]
     Indication: TYPE 2 DIABETES MELLITUS
     Dosage: 0.6 MG, QD
     Route: 065
     Dates: start: 20111216, end: 20111219
  4. SIMVASTATIN [Concomitant]
  5. ZOPIKLON [Concomitant]
  6. METFORMIN HCL [Concomitant]
  7. OMEPRAZOLE [Concomitant]
  8. ENALAPRIL [Concomitant]

REACTIONS (2)
  - IIIRD NERVE PARESIS [None]
  - VITH NERVE PARALYSIS [None]
